FAERS Safety Report 25752378 (Version 1)
Quarter: 2025Q3

REPORT INFORMATION
  Report Type: Spontaneous
  Country: US (occurrence: US)
  Receive Date: 20250902
  Receipt Date: 20250902
  Transmission Date: 20251021
  Serious: Yes (Death, Other)
  Sender: AMGEN
  Company Number: US-AMGEN-USASP2025172820

PATIENT
  Age: 69 Year
  Sex: Male

DRUGS (2)
  1. TARLATAMAB [Suspect]
     Active Substance: TARLATAMAB
     Indication: Small cell lung cancer extensive stage
     Route: 065
  2. ATEZOLIZUMAB [Concomitant]
     Active Substance: ATEZOLIZUMAB
     Indication: Small cell lung cancer extensive stage

REACTIONS (7)
  - Tumour lysis syndrome [Fatal]
  - Liver injury [Unknown]
  - Acute kidney injury [Unknown]
  - Cytokine release syndrome [Unknown]
  - Hypoxia [Unknown]
  - Pyrexia [Unknown]
  - Hypotension [Unknown]
